FAERS Safety Report 4535652-9 (Version None)
Quarter: 2004Q4

REPORT INFORMATION
  Report Type: 
  Country: None (occurrence: None)
  Receive Date: 20041222
  Receipt Date: 20041222
  Transmission Date: 20050328
  Serious: Yes (Hospitalization)
  Sender: FDA-Public Use
  Company Number: None

PATIENT
  Age: 26 Year
  Sex: Female
  Weight: 68 kg

DRUGS (3)
  1. PROVENTIL [Suspect]
     Indication: ASTHMA
     Dosage: 1-2 PUFFS FOUR TIMES A DAY [SINCE CHILDHOOD]
  2. CLARINEX [Concomitant]
  3. IBUPROFEN [Concomitant]

REACTIONS (3)
  - ASTHENIA [None]
  - FALL [None]
  - HYPOKALAEMIA [None]
